FAERS Safety Report 13004479 (Version 3)
Quarter: 2019Q3

REPORT INFORMATION
  Report Type: Spontaneous
  Country: US (occurrence: US)
  Receive Date: 20161207
  Receipt Date: 20190724
  Transmission Date: 20191004
  Serious: Yes (Other)
  Sender: FDA-Public Use
  Company Number: US-BIOGEN-2016BI00325663

PATIENT
  Sex: Female
  Weight: 75.82 kg

DRUGS (2)
  1. TECFIDERA [Suspect]
     Active Substance: DIMETHYL FUMARATE
     Dosage: MAINTENANCE DOSE
     Route: 048
  2. TECFIDERA [Suspect]
     Active Substance: DIMETHYL FUMARATE
     Indication: MULTIPLE SCLEROSIS
     Route: 048
     Dates: start: 20130619, end: 201312

REACTIONS (11)
  - General physical health deterioration [Not Recovered/Not Resolved]
  - Balance disorder [Not Recovered/Not Resolved]
  - Hypersomnia [Recovered/Resolved]
  - Tooth disorder [Not Recovered/Not Resolved]
  - Tooth loss [Unknown]
  - Fall [Recovered/Resolved]
  - Malaise [Recovered/Resolved]
  - Dysstasia [Recovered/Resolved]
  - Anger [Not Recovered/Not Resolved]
  - Dyspnoea [Recovered/Resolved]
  - Hypophagia [Not Recovered/Not Resolved]

NARRATIVE: CASE EVENT DATE: 2013
